FAERS Safety Report 20466424 (Version 1)
Quarter: 2022Q1

REPORT INFORMATION
  Report Type: Spontaneous
  Country: US (occurrence: US)
  Receive Date: 20220213
  Receipt Date: 20220213
  Transmission Date: 20220423
  Serious: Yes (Hospitalization)
  Sender: FDA-Public Use
  Company Number: US-JNJFOC-20220206406

PATIENT
  Age: 30 Year
  Sex: Male

DRUGS (2)
  1. IMODIUM [Suspect]
     Active Substance: LOPERAMIDE HYDROCHLORIDE
     Indication: Diarrhoea
     Route: 065
  2. IMODIUM [Suspect]
     Active Substance: LOPERAMIDE HYDROCHLORIDE
     Dosage: ON THE DAY OF ADMISSION
     Route: 065

REACTIONS (4)
  - Torsade de pointes [Unknown]
  - Long QT syndrome [Recovering/Resolving]
  - Hypokalaemia [Recovered/Resolved]
  - Overdose [Unknown]
